FAERS Safety Report 9224129 (Version 2)
Quarter: 2013Q2

REPORT INFORMATION
  Report Type: Spontaneous
  Country: US (occurrence: US)
  Receive Date: 20130411
  Receipt Date: 20130510
  Transmission Date: 20140414
  Serious: No
  Sender: FDA-Public Use
  Company Number: US-PFIZER INC-2013109889

PATIENT
  Age: 59 Year
  Sex: Female
  Weight: 74.83 kg

DRUGS (10)
  1. ESTRING [Suspect]
     Indication: OESTROGEN REPLACEMENT THERAPY
     Dosage: UNK
     Route: 067
     Dates: start: 20130403, end: 20130404
  2. ESTRING [Suspect]
     Indication: BLADDER PROLAPSE
  3. ESTRING [Suspect]
     Indication: ATROPHIC VULVOVAGINITIS
  4. ESTRING [Suspect]
     Indication: PELVIC PAIN
  5. ESTRING [Suspect]
     Indication: PELVIC PROLAPSE
  6. ESTRING [Suspect]
     Indication: VAGINAL DISORDER
  7. CYMBALTA [Concomitant]
     Indication: BIPOLAR DISORDER
     Dosage: UNK
  8. XANAX [Concomitant]
     Indication: BIPOLAR DISORDER
     Dosage: UNK
  9. TOPIRAMATE [Concomitant]
     Indication: BIPOLAR DISORDER
     Dosage: UNK
  10. BUPROPION [Concomitant]
     Indication: BIPOLAR DISORDER
     Dosage: UNK

REACTIONS (2)
  - Vulvovaginal pain [Unknown]
  - Drug ineffective [Unknown]
